FAERS Safety Report 7381272 (Version 2)
Quarter: 2020Q3

REPORT INFORMATION
  Report Type: Report from Study
  Country: CN (occurrence: CN)
  Receive Date: 20100507
  Receipt Date: 20100902
  Transmission Date: 20201104
  Serious: Yes (Death, Hospitalization)
  Sender: FDA-Public Use
  Company Number: CN-WYE-H14601910

PATIENT
  Age: 60 Year
  Sex: Male
  Weight: 59 kg

DRUGS (1)
  1. IMATINIB MESYLATE. [Suspect]
     Active Substance: IMATINIB MESYLATE
     Indication: CHRONIC MYELOID LEUKAEMIA
     Route: 048
     Dates: start: 20090612, end: 20100414

REACTIONS (5)
  - Respiratory failure [Fatal]
  - Central nervous system leukaemia [Fatal]
  - Pneumonia [Fatal]
  - Acinetobacter infection [Fatal]
  - Confusional state [Not Recovered/Not Resolved]

NARRATIVE: CASE EVENT DATE: 20100411
